FAERS Safety Report 17815028 (Version 2)
Quarter: 2020Q2

REPORT INFORMATION
  Report Type: Report from Study
  Country: GR (occurrence: GR)
  Receive Date: 20200522
  Receipt Date: 20200622
  Transmission Date: 20200714
  Serious: Yes (Other)
  Sender: FDA-Public Use
  Company Number: NVSC2020GR110456

PATIENT
  Age: 69 Year
  Sex: Male
  Weight: 80 kg

DRUGS (6)
  1. NORVASC [Concomitant]
     Active Substance: AMLODIPINE BESYLATE
     Indication: HYPERTENSION
     Dosage: UNK
     Route: 065
     Dates: start: 20200421, end: 20200510
  2. VALACYCLOVIR [Concomitant]
     Active Substance: VALACYCLOVIR HYDROCHLORIDE
     Indication: HERPES ZOSTER
     Dosage: UNK
     Route: 065
     Dates: start: 20200330, end: 20200406
  3. PLACEBO [Suspect]
     Active Substance: UNSPECIFIED INGREDIENT
     Indication: SJOGREN^S SYNDROME
     Dosage: CODE NOT BROKEN
     Route: 058
     Dates: start: 20200217, end: 20200413
  4. BLINDED NO TREATMENT RECEIVED [Suspect]
     Active Substance: INVESTIGATIONAL PRODUCT
     Indication: SJOGREN^S SYNDROME
     Dosage: CODE NOT BROKEN
     Route: 058
     Dates: start: 20200217, end: 20200413
  5. BLINDED CFZ533 [Suspect]
     Active Substance: ISCALIMAB
     Indication: SJOGREN^S SYNDROME
     Dosage: CODE NOT BROKEN
     Route: 058
     Dates: start: 20200217, end: 20200413
  6. COPALIA [Suspect]
     Active Substance: AMLODIPINE BESYLATE\VALSARTAN
     Indication: HYPERTENSION
     Dosage: UNK
     Route: 065
     Dates: start: 20200310, end: 20200423

REACTIONS (1)
  - Glomerulonephritis [Recovering/Resolving]

NARRATIVE: CASE EVENT DATE: 20200422
